FAERS Safety Report 22175835 (Version 2)
Quarter: 2023Q2

REPORT INFORMATION
  Report Type: Spontaneous
  Country: JP (occurrence: JP)
  Receive Date: 20230405
  Receipt Date: 20230417
  Transmission Date: 20230721
  Serious: Yes (Other)
  Sender: FDA-Public Use
  Company Number: JP-GLAXOSMITHKLINE-JP2023JPN047608

PATIENT

DRUGS (7)
  1. MEPOLIZUMAB [Suspect]
     Active Substance: MEPOLIZUMAB
     Indication: Asthma
     Dosage: UNK
  2. MEPOLIZUMAB [Suspect]
     Active Substance: MEPOLIZUMAB
     Indication: Eosinophilic otitis media
  3. MEPOLIZUMAB [Suspect]
     Active Substance: MEPOLIZUMAB
     Indication: Chronic sinusitis
  4. BETNOVATE [Suspect]
     Active Substance: BETAMETHASONE
     Indication: Eosinophilic otitis media
     Dosage: UNK
  5. BETNOVATE [Suspect]
     Active Substance: BETAMETHASONE
     Indication: Chronic sinusitis
  6. BETAMETHASONE [Concomitant]
     Active Substance: BETAMETHASONE
     Indication: Chronic sinusitis
     Dosage: UNK
     Route: 045
  7. BETAMETHASONE [Concomitant]
     Active Substance: BETAMETHASONE
     Indication: Eosinophilic otitis media
     Dosage: UNK
     Route: 001

REACTIONS (13)
  - Eosinophilic otitis media [Unknown]
  - Condition aggravated [Unknown]
  - Chronic sinusitis [Recovering/Resolving]
  - Sinonasal obstruction [Recovering/Resolving]
  - Olfactory dysfunction [Recovering/Resolving]
  - Tympanic membrane perforation [Not Recovered/Not Resolved]
  - Eustachian tube obstruction [Recovering/Resolving]
  - Conductive deafness [Not Recovered/Not Resolved]
  - Nasal polyps [Recovering/Resolving]
  - Rhinorrhoea [Recovering/Resolving]
  - Nasal obstruction [Recovering/Resolving]
  - Drug ineffective for unapproved indication [Unknown]
  - Product use in unapproved indication [Unknown]
